FAERS Safety Report 8353399 (Version 4)
Quarter: 2013Q1

REPORT INFORMATION
  Report Type: Spontaneous
  Country: US (occurrence: US)
  Receive Date: 20120125
  Receipt Date: 20130117
  Transmission Date: 20140127
  Serious: Yes (Life-Threatening, Congenital Anomaly, Other)
  Sender: FDA-Public Use
  Company Number: US-PFIZER INC-2012003374

PATIENT
  Sex: Male
  Weight: 3.6 kg

DRUGS (3)
  1. ZOLOFT [Suspect]
     Dosage: 100 MG DAILY
     Route: 064
     Dates: start: 2002, end: 2005
  2. PRENATAL [Concomitant]
     Dosage: ONE TABLET DAILY
     Route: 064
     Dates: start: 20020518
  3. PRENATAL VITAMINS [Concomitant]
     Dosage: UNK

REACTIONS (9)
  - Maternal exposure timing unspecified [Unknown]
  - Craniosynostosis [Not Recovered/Not Resolved]
  - Convulsion [Unknown]
  - Scaphocephaly [Unknown]
  - Hypotonia neonatal [Recovering/Resolving]
  - Hydrocephalus [Unknown]
  - Sleep apnoea syndrome [Not Recovered/Not Resolved]
  - Periodic limb movement disorder [Unknown]
  - Motor dysfunction [Unknown]
